FAERS Safety Report 15742821 (Version 2)
Quarter: 2019Q1

REPORT INFORMATION
  Report Type: Spontaneous
  Country: PR (occurrence: PR)
  Receive Date: 20181219
  Receipt Date: 20190309
  Transmission Date: 20190417
  Serious: No
  Sender: FDA-Public Use
  Company Number: PR-JNJFOC-20181140828

PATIENT
  Sex: Female

DRUGS (1)
  1. SIMPONI ARIA [Suspect]
     Active Substance: GOLIMUMAB
     Indication: PRODUCT USED FOR UNKNOWN INDICATION
     Route: 042

REACTIONS (5)
  - Carpal tunnel syndrome [Not Recovered/Not Resolved]
  - Arthralgia [Not Recovered/Not Resolved]
  - Joint swelling [Not Recovered/Not Resolved]
  - Product dose omission [Unknown]
  - Back pain [Unknown]
